FAERS Safety Report 5402055-4 (Version None)
Quarter: 2007Q3

REPORT INFORMATION
  Report Type: 
  Country: None (occurrence: None)
  Receive Date: 20070727
  Receipt Date: 20070717
  Transmission Date: 20080115
  Serious: Yes (Other)
  Sender: FDA-Public Use
  Company Number: 39130

PATIENT
  Age: 87 Year
  Sex: Female

DRUGS (1)
  1. METHOTREXATE INJ. USP 50MG/2ML - BEDFORD LABS, INC. [Suspect]
     Indication: RHEUMATOID ARTHRITIS
     Dosage: 0.6 ML/ONCE WEEKLY SUBCUTAN
     Route: 058
     Dates: start: 20070101

REACTIONS (2)
  - MEDICATION ERROR [None]
  - WRONG TECHNIQUE IN DRUG USAGE PROCESS [None]
